FAERS Safety Report 20436648 (Version 1)
Quarter: 2022Q1

REPORT INFORMATION
  Report Type: Spontaneous
  Country: BR (occurrence: BR)
  Receive Date: 20220207
  Receipt Date: 20220207
  Transmission Date: 20220423
  Serious: Yes (Death, Hospitalization, Other)
  Sender: FDA-Public Use
  Company Number: BR-009507513-2202BRA000783

PATIENT
  Age: 55 Year
  Sex: Male

DRUGS (1)
  1. LETERMOVIR [Suspect]
     Active Substance: LETERMOVIR
     Indication: Prophylaxis
     Dosage: UNK

REACTIONS (4)
  - COVID-19 [Fatal]
  - Transplant [Unknown]
  - Adverse event [Unknown]
  - Dysgeusia [Unknown]
